FAERS Safety Report 12512737 (Version 1)
Quarter: 2016Q2

REPORT INFORMATION
  Report Type: Spontaneous
  Country: US (occurrence: None)
  Receive Date: 20160629
  Receipt Date: 20160629
  Transmission Date: 20160815
  Serious: Yes (Disabling)
  Sender: FDA-Public Use
  Company Number: None

PATIENT
  Age: 53 Year
  Sex: Female
  Weight: 99.79 kg

DRUGS (20)
  1. NORTRIPYLINE [Concomitant]
  2. NASONEX [Concomitant]
     Active Substance: MOMETASONE FUROATE
  3. ALBUTEROL. [Concomitant]
     Active Substance: ALBUTEROL
  4. OMEPRAZOLE. [Concomitant]
     Active Substance: OMEPRAZOLE
  5. METOPROLOL TARTRATE. [Concomitant]
     Active Substance: METOPROLOL TARTRATE
  6. PROPAFENONE. [Concomitant]
     Active Substance: PROPAFENONE
  7. BUTRANS [Suspect]
     Active Substance: BUPRENORPHINE
     Indication: ARACHNOIDITIS
     Dosage: 4 PATCH(ES) WEEKLY APPLIED AS MEDICATED PATCH TO SKIN
     Dates: start: 20160514, end: 20160627
  8. FLOVENT HFA [Concomitant]
     Active Substance: FLUTICASONE PROPIONATE
  9. VITAMIN D3 [Concomitant]
     Active Substance: CHOLECALCIFEROL
  10. B1 [Concomitant]
  11. BUTRANS [Suspect]
     Active Substance: BUPRENORPHINE
     Indication: PAIN
     Dosage: 4 PATCH(ES) WEEKLY APPLIED AS MEDICATED PATCH TO SKIN
     Dates: start: 20160514, end: 20160627
  12. HYOSCYAMINE. [Concomitant]
     Active Substance: HYOSCYAMINE
  13. VITAMIN B12 [Concomitant]
     Active Substance: CYANOCOBALAMIN
  14. LACTASE ENZYMES [Concomitant]
  15. LORATIDINE [Concomitant]
     Active Substance: LORATADINE
  16. EPIPEN [Concomitant]
     Active Substance: EPINEPHRINE
  17. LEVOTHYROXINE. [Concomitant]
     Active Substance: LEVOTHYROXINE
  18. COLACE [Concomitant]
     Active Substance: DOCUSATE SODIUM
  19. GAS-X [Concomitant]
     Active Substance: DIMETHICONE
  20. PROMETHAZINE [Concomitant]
     Active Substance: PROMETHAZINE\PROMETHAZINE HYDROCHLORIDE

REACTIONS (3)
  - Application site pruritus [None]
  - Application site vesicles [None]
  - Application site reaction [None]

NARRATIVE: CASE EVENT DATE: 20160609
